FAERS Safety Report 5705239-0 (Version None)
Quarter: 2008Q2

REPORT INFORMATION
  Report Type: 
  Country: None (occurrence: None)
  Receive Date: 20080411
  Receipt Date: 20080402
  Transmission Date: 20081010
  Serious: Yes (Death, Other)
  Sender: FDA-Public Use
  Company Number: 2008SP004216

PATIENT
  Age: 74 Year
  Sex: Male
  Weight: 89.9 kg

DRUGS (20)
  1. POTASSIUM CHLORIDE [Suspect]
     Indication: HYPOKALAEMIA
     Dosage: 40 MEQ; PO, 20 MEQ; PO
     Route: 053
     Dates: start: 20060606, end: 20060611
  2. POTASSIUM CHLORIDE [Suspect]
     Indication: HYPOKALAEMIA
     Dosage: 40 MEQ; PO, 20 MEQ; PO
     Route: 053
     Dates: start: 20060612, end: 20060612
  3. ARANESP [Suspect]
     Indication: ANAEMIA OF MALIGNANT DISEASE
     Dosage: 500 MGC; Q3W; SC
     Route: 058
     Dates: start: 20060412, end: 20060612
  4. METHOTREXATE [Suspect]
     Indication: DRUG USE FOR UNKNOWN INDICATION
     Dosage: 2000 MG; IV, 8000 MG; IV
     Route: 042
     Dates: start: 20060508, end: 20060508
  5. METHOTREXATE [Suspect]
     Indication: DRUG USE FOR UNKNOWN INDICATION
     Dosage: 2000 MG; IV, 8000 MG; IV
     Route: 042
     Dates: start: 20060508, end: 20060509
  6. MESNA [Suspect]
     Indication: DRUG USE FOR UNKNOWN INDICATION
     Dosage: 200 MG; IV
     Route: 042
     Dates: start: 20060606, end: 20060612
  7. LASIX [Concomitant]
  8. PLATELETS [Concomitant]
  9. BLOOD CELLS, PACKED, HUMAN [Concomitant]
  10. PROZAC [Concomitant]
  11. PRILOSEC [Concomitant]
  12. VALTREX [Concomitant]
  13. DIFLUCAN [Concomitant]
  14. CIPRO [Concomitant]
  15. LIPITOR [Concomitant]
  16. PAXIL [Concomitant]
  17. NEUPOGEN [Concomitant]
  18. RITUXIMAB [Concomitant]
  19. SODIUM BICARBONATE [Concomitant]
  20. VANCOMYCIN [Concomitant]

REACTIONS (14)
  - ARRHYTHMIA [None]
  - BLOOD POTASSIUM DECREASED [None]
  - BLOOD PRESSURE INCREASED [None]
  - BLOOD PRESSURE SYSTOLIC INCREASED [None]
  - CARDIAC ARREST [None]
  - CARDIAC HYPERTROPHY [None]
  - DECREASED APPETITE [None]
  - EPISTAXIS [None]
  - FLUID OVERLOAD [None]
  - HAEMATURIA [None]
  - PULMONARY CONGESTION [None]
  - SPLEEN CONGESTION [None]
  - UNRESPONSIVE TO STIMULI [None]
  - WEIGHT INCREASED [None]
